FAERS Safety Report 4764848-6 (Version None)
Quarter: 2005Q3

REPORT INFORMATION
  Report Type: 
  Country: None (occurrence: None)
  Receive Date: 20050907
  Receipt Date: 20050803
  Transmission Date: 20060218
  Serious: Yes (Hospitalization)
  Sender: FDA-Public Use
  Company Number: 200513119BCC

PATIENT
  Age: 73 Month
  Sex: Male
  Weight: 96.1626 kg

DRUGS (4)
  1. ALEVE [Suspect]
     Indication: ARTHRALGIA
     Dosage: SEE IMAGE
     Route: 048
     Dates: start: 20050101
  2. ALEVE [Suspect]
     Indication: ARTHRALGIA
     Dosage: SEE IMAGE
     Route: 048
     Dates: start: 20050101
  3. BUPROPION [Concomitant]
  4. COREG [Concomitant]

REACTIONS (2)
  - DEHYDRATION [None]
  - INCORRECT DOSE ADMINISTERED [None]
